FAERS Safety Report 4482385-3 (Version None)
Quarter: 2004Q4

REPORT INFORMATION
  Report Type: 
  Country: None (occurrence: None)
  Receive Date: 20041022
  Receipt Date: 20031112
  Transmission Date: 20050328
  Serious: No
  Sender: FDA-Public Use
  Company Number: US-BRISTOL-MYERS SQUIBB COMPANY-12433827

PATIENT
  Age: 47 Year
  Sex: Female
  Weight: 77 kg

DRUGS (7)
  1. BUSPAR [Suspect]
     Indication: ANXIETY
     Dosage: 15MG/DAY X1WK, THEN 30 MG BID FROM 16-OCT X1WK.
     Route: 048
     Dates: start: 20031009
  2. PAXIL [Concomitant]
  3. NEURONTIN [Concomitant]
  4. ASPIRIN [Concomitant]
  5. MULTI-VITAMIN [Concomitant]
  6. PRIMROSE OIL [Concomitant]
     Dosage: EVENING PRIMROSE OIL
  7. CALCIUM [Concomitant]

REACTIONS (6)
  - ANXIETY [None]
  - BLEPHAROSPASM [None]
  - HEADACHE [None]
  - MUSCLE SPASMS [None]
  - TIC [None]
  - TREMOR [None]
